FAERS Safety Report 4883680-6 (Version None)
Quarter: 2006Q1

REPORT INFORMATION
  Report Type: 
  Country: None (occurrence: None)
  Receive Date: 20060113
  Receipt Date: 20060106
  Transmission Date: 20060701
  Serious: Yes (Hospitalization)
  Sender: FDA-Public Use
  Company Number: TPA2005A01574

PATIENT
  Age: 82 Year
  Sex: Female
  Weight: 97.0698 kg

DRUGS (3)
  1. ACTOS [Suspect]
     Indication: DIABETES MELLITUS NON-INSULIN-DEPENDENT
     Dosage: 15 MG, 1 IN 1 D, PER ORAL
     Route: 048
     Dates: start: 20020101
  2. GLYBURIDE [Concomitant]
  3. THYROID TAB [Concomitant]

REACTIONS (5)
  - ALOPECIA [None]
  - CORONARY ARTERY OCCLUSION [None]
  - INTESTINAL OBSTRUCTION [None]
  - JOINT SWELLING [None]
  - WEIGHT INCREASED [None]
